FAERS Safety Report 4924851-X (Version None)
Quarter: 2006Q1

REPORT INFORMATION
  Report Type: 
  Country: None (occurrence: None)
  Receive Date: 20060222
  Receipt Date: 20060206
  Transmission Date: 20060701
  Serious: Yes (Hospitalization)
  Sender: FDA-Public Use
  Company Number: 13433

PATIENT
  Age: 29 Year
  Sex: Female
  Weight: 54.7 kg

DRUGS (23)
  1. CYTARABINE [Suspect]
     Indication: ACUTE MYELOID LEUKAEMIA RECURRENT
     Dosage: 2.37 G BID IV
     Route: 042
     Dates: start: 20041019, end: 20041024
  2. RAMIPRIL [Concomitant]
  3. CARVEDILOL [Concomitant]
  4. GABAPENTIN [Concomitant]
  5. POTASSIUM [Concomitant]
  6. PANTOPRAZOLE [Concomitant]
  7. VORICONAZOLE [Concomitant]
  8. HYDROMORPHONE HYDROCHLORIDE [Concomitant]
  9. ACETAMINOPHEN AND HYDROCODONE BITARTRATE [Concomitant]
  10. ODANSETRON [Concomitant]
  11. METHYLPREDNISOLONE [Concomitant]
  12. PREDNISOLONE ACETATE OPHTHALMIC SUSPENSION/DROPS [Concomitant]
  13. ALLOPURINOL [Concomitant]
  14. LEVOFLOXACIN [Concomitant]
  15. VALTREX [Concomitant]
  16. PROPOXYPHENE HYDROCHLORIDE CAP [Concomitant]
  17. ACETAMINOPHEN [Concomitant]
  18. DIPHENHYDRAMINE HYDROCHLORIDE [Concomitant]
  19. FUROSEMIDE [Concomitant]
  20. PROMETHAZINE HCL [Concomitant]
  21. TRIAMCINOLONE [Concomitant]
  22. HYDROCORTISONE [Concomitant]
  23. LOPERAMIDE HYDROCHLORIDE [Concomitant]

REACTIONS (5)
  - ALPHA HAEMOLYTIC STREPTOCOCCAL INFECTION [None]
  - FEBRILE NEUTROPENIA [None]
  - HAEMATOCRIT DECREASED [None]
  - HAEMOGLOBIN DECREASED [None]
  - PLATELET COUNT DECREASED [None]
